FAERS Safety Report 23113444 (Version 1)
Quarter: 2023Q4

REPORT INFORMATION
  Report Type: Spontaneous
  Country: US (occurrence: US)
  Receive Date: 20231027
  Receipt Date: 20231027
  Transmission Date: 20240109
  Serious: Yes (Other)
  Sender: FDA-Public Use
  Company Number: US-AMGEN-USASP2023185910

PATIENT
  Sex: Male

DRUGS (3)
  1. TRASTUZUMAB [Suspect]
     Active Substance: TRASTUZUMAB
     Indication: Breast cancer male
     Dosage: UNK
     Route: 065
  2. PERTUZUMAB [Concomitant]
     Active Substance: PERTUZUMAB
     Dosage: UNK
     Route: 065
  3. ADO-TRASTUZUMAB EMTANSINE [Concomitant]
     Active Substance: ADO-TRASTUZUMAB EMTANSINE
     Dosage: UNK
     Route: 065

REACTIONS (18)
  - Neuropathy peripheral [Unknown]
  - Peripheral swelling [Unknown]
  - Musculoskeletal disorder [Unknown]
  - Sexual dysfunction [Unknown]
  - Musculoskeletal pain [Unknown]
  - Visual impairment [Unknown]
  - Stress [Unknown]
  - Fear [Unknown]
  - Disturbance in attention [Unknown]
  - Sleep disorder [Unknown]
  - Mood altered [Unknown]
  - Scar pain [Unknown]
  - Anxiety [Unknown]
  - Adverse event [Unknown]
  - Post-traumatic stress disorder [Unknown]
  - Alopecia [Unknown]
  - Hot flush [Unknown]
  - Fatigue [Unknown]
